FAERS Safety Report 7836711-5 (Version None)
Quarter: 2011Q4

REPORT INFORMATION
  Report Type: 
  Country: None (occurrence: None)
  Receive Date: 20111024
  Receipt Date: 20101129
  Transmission Date: 20120403
  Serious: No
  Sender: FDA-Public Use
  Company Number: US-ABBOTT-10P-163-0688148-00

PATIENT
  Sex: Female

DRUGS (2)
  1. LUPRON [Suspect]
     Indication: PRODUCT USED FOR UNKNOWN INDICATION
  2. FOLLISTIM [Suspect]
     Indication: PRODUCT USED FOR UNKNOWN INDICATION

REACTIONS (9)
  - HEAD DISCOMFORT [None]
  - CHEST PAIN [None]
  - HEADACHE [None]
  - ANXIETY [None]
  - EYE PAIN [None]
  - JAW DISORDER [None]
  - FEELING ABNORMAL [None]
  - NECK PAIN [None]
  - MUSCLE TIGHTNESS [None]
